FAERS Safety Report 9148494 (Version 2)
Quarter: 2013Q1

REPORT INFORMATION
  Report Type: Spontaneous
  Country: US (occurrence: None)
  Receive Date: 20130226
  Receipt Date: 20130227
  Transmission Date: 20140127
  Serious: Yes (Death)
  Sender: FDA-Public Use
  Company Number: SYM-2013-00783

PATIENT
  Age: 34 Year
  Sex: Male

DRUGS (1)
  1. XENAZINE [Suspect]
     Indication: HUNTINGTON^S DISEASE
     Dosage: 25  MG,  2 IN 1 D,  ORAL
     Route: 048

REACTIONS (2)
  - Disease complication [None]
  - Huntington^s disease [None]
